FAERS Safety Report 12323538 (Version 1)
Quarter: 2016Q2

REPORT INFORMATION
  Report Type: Spontaneous
  Country: FR (occurrence: FR)
  Receive Date: 20160502
  Receipt Date: 20160502
  Transmission Date: 20160815
  Serious: Yes (Other)
  Sender: FDA-Public Use
  Company Number: FR-BAYER-2016-083550

PATIENT
  Age: 41 Year
  Sex: Female

DRUGS (1)
  1. JAYDESS [Suspect]
     Active Substance: LEVONORGESTREL
     Indication: CONTRACEPTION
     Dosage: 14 MCG/24HR, CONT
     Route: 015
     Dates: start: 2014

REACTIONS (5)
  - Peritoneal haemorrhage [None]
  - Drug ineffective [None]
  - Pelvic pain [None]
  - Ectopic pregnancy with contraceptive device [None]
  - Haematosalpinx [None]

NARRATIVE: CASE EVENT DATE: 201512
